FAERS Safety Report 19812557 (Version 3)
Quarter: 2021Q3

REPORT INFORMATION
  Report Type: Spontaneous
  Country: CN (occurrence: CN)
  Receive Date: 20210910
  Receipt Date: 20210930
  Transmission Date: 20211014
  Serious: Yes (Other)
  Sender: FDA-Public Use
  Company Number: CN-SA-2021SA299205

PATIENT
  Age: 34 Year
  Sex: Male

DRUGS (4)
  1. GLUCOSE [Concomitant]
     Active Substance: DEXTROSE
     Indication: MEDICATION DILUTION
     Dosage: 250 ML
  2. FLUOROURACIL. [Suspect]
     Active Substance: FLUOROURACIL
     Indication: HEPATIC PERFUSION DISORDER
     Dosage: 44 HOURS OF PERFUSION AFTER 2 HOURS OF PERFUSION
     Dates: start: 20210728
  3. LENVIMA [Concomitant]
     Active Substance: LENVATINIB
  4. ELOXATIN [Suspect]
     Active Substance: OXALIPLATIN
     Indication: HEPATIC PERFUSION DISORDER
     Dosage: 165 MG OF ELOXATIN (OXALIPLATIN FOR INJECTION) WAS DISSOLVED IN 250 ML OF 5% GLUCOSE SOLUTION
     Dates: start: 20210728

REACTIONS (6)
  - Myelosuppression [Unknown]
  - Suspected product quality issue [Unknown]
  - White blood cell count decreased [Unknown]
  - Abdominal pain [Unknown]
  - Platelet count decreased [Unknown]
  - Off label use [Unknown]

NARRATIVE: CASE EVENT DATE: 20210728
